FAERS Safety Report 8721073 (Version 2)
Quarter: 2012Q4

REPORT INFORMATION
  Report Type: 
  Country: GB (occurrence: GB)
  Receive Date: 20120813
  Receipt Date: 20120928
  Transmission Date: 20130627
  Serious: Yes (Hospitalization)
  Sender: FDA-Public Use
  Company Number: GB-TEVA-351915ISR

PATIENT
  Age: 75 Year
  Sex: Female

DRUGS (4)
  1. METOCLOPRAMIDE [Suspect]
     Indication: NAUSEA
     Dosage: 2 Dosage forms Daily; One dose in the morning and second dose in the afternoon.
     Route: 048
     Dates: start: 20120417
  2. GABAPENTIN [Concomitant]
  3. LANSOPRAZOLE [Concomitant]
  4. CHEMOTHERAPY [Concomitant]

REACTIONS (4)
  - Muscle twitching [Recovered/Resolved]
  - Dyskinesia [Recovered/Resolved]
  - Dysarthria [Recovered/Resolved]
  - Tinnitus [Recovered/Resolved]
